FAERS Safety Report 4875767-9 (Version None)
Quarter: 2006Q1

REPORT INFORMATION
  Report Type: 
  Country: None (occurrence: None)
  Receive Date: 20060109
  Receipt Date: 20051230
  Transmission Date: 20060701
  Serious: Yes (Life-Threatening, Hospitalization)
  Sender: FDA-Public Use
  Company Number: DE-ABBOTT-05P-062-0320964-00

PATIENT

DRUGS (1)
  1. ZEMPLAR [Suspect]
     Indication: HYPERPARATHYROIDISM SECONDARY
     Route: 042
     Dates: start: 20051111, end: 20051211

REACTIONS (3)
  - AZOTAEMIA [None]
  - COAGULOPATHY [None]
  - RETROPERITONEAL HAEMORRHAGE [None]
